FAERS Safety Report 19462346 (Version 1)
Quarter: 2021Q2

REPORT INFORMATION
  Report Type: Report from Study
  Country: US (occurrence: US)
  Receive Date: 20210625
  Receipt Date: 20210625
  Transmission Date: 20210717
  Serious: Yes (Other)
  Sender: FDA-Public Use
  Company Number: US-EXELIXIS-CABO-21041447

PATIENT
  Sex: Male

DRUGS (1)
  1. CABOMETYX [Suspect]
     Active Substance: CABOZANTINIB S-MALATE
     Indication: PRODUCT USED FOR UNKNOWN INDICATION
     Dosage: 40 MG, QD (TWO TABLETS OF 20 MG)
     Route: 048
     Dates: start: 20210429

REACTIONS (5)
  - Fatigue [Unknown]
  - Dry skin [Unknown]
  - Oral pain [Unknown]
  - Blood pressure increased [Unknown]
  - Myocardial infarction [Unknown]
